FAERS Safety Report 8579226-1 (Version None)
Quarter: 2012Q3

REPORT INFORMATION
  Report Type: 
  Country: None (occurrence: None)
  Receive Date: 20120808
  Receipt Date: 20120731
  Transmission Date: 20120928
  Serious: Yes (Other)
  Sender: FDA-Public Use
  Company Number: FR-ROCHE-1095500

PATIENT
  Sex: Female

DRUGS (5)
  1. ROCEPHIN [Suspect]
     Indication: PHARYNGEAL ABSCESS
     Route: 042
     Dates: start: 20101001
  2. XYZAL [Concomitant]
  3. VENTOLIN [Concomitant]
  4. SINGULAIR [Concomitant]
  5. INNOVAR [Concomitant]

REACTIONS (1)
  - ASTHMATIC CRISIS [None]
